FAERS Safety Report 9836579 (Version 2)
Quarter: 2014Q1

REPORT INFORMATION
  Report Type: Report from Study
  Country: MX (occurrence: MX)
  Receive Date: 20140123
  Receipt Date: 20140123
  Transmission Date: 20141002
  Serious: Yes (Disabling)
  Sender: FDA-Public Use
  Company Number: MX-ORION CORPORATION ORION PHARMA-ENTC2012-0377

PATIENT
  Age: 72 Year
  Sex: Female
  Weight: 60 kg

DRUGS (9)
  1. STALEVO [Suspect]
     Indication: PARKINSON^S DISEASE
     Dosage: STRENGTH: 150/37.5/200 MG
     Route: 048
     Dates: start: 201110
  2. STALEVO [Suspect]
     Dosage: STRENGTH: 50/12.5/200 MG
     Route: 048
  3. LOSARTAN [Concomitant]
     Indication: HYPERTENSION
     Dosage: STRENGTH: 15 MG
     Route: 048
     Dates: start: 200807
  4. PROPANOLOL [Concomitant]
     Indication: HYPERTENSION
     Dosage: STRENGTH: 15 MG
     Route: 048
     Dates: start: 200808
  5. SIFROL [Concomitant]
     Indication: PARKINSON^S DISEASE
     Route: 065
  6. METFORMINE [Concomitant]
     Indication: DIABETES MELLITUS
     Route: 065
  7. ETECAMER [Concomitant]
     Indication: PARKINSON^S DISEASE
     Route: 065
  8. JANUMET [Concomitant]
     Dosage: STRENGTH: 50/850
     Route: 065
  9. PECAMIAR [Concomitant]
     Indication: PARKINSON^S DISEASE
     Dosage: STRENGTH: 100 MG
     Route: 048

REACTIONS (8)
  - Abdominal pain upper [Not Recovered/Not Resolved]
  - Dyspepsia [Not Recovered/Not Resolved]
  - Pruritus [Not Recovered/Not Resolved]
  - Fall [Recovered/Resolved]
  - Joint injury [Recovered/Resolved]
  - Immobile [Recovered/Resolved]
  - Dry skin [Not Recovered/Not Resolved]
  - Rash [Not Recovered/Not Resolved]
